FAERS Safety Report 8176391-5 (Version None)
Quarter: 2012Q1

REPORT INFORMATION
  Report Type: 
  Country: None (occurrence: None)
  Receive Date: 20120301
  Receipt Date: 20120220
  Transmission Date: 20120608
  Serious: Yes (Hospitalization, Congenital Anomaly, Other)
  Sender: FDA-Public Use
  Company Number: US-FRI-1000028169

PATIENT
  Sex: Male

DRUGS (2)
  1. LEXAPRO [Suspect]
     Indication: SLEEP DISORDER
  2. LEXAPRO [Suspect]
     Indication: ANXIETY
     Dosage: 10 MG
     Route: 064
     Dates: start: 20040901, end: 20050429

REACTIONS (10)
  - INGUINAL HERNIA [None]
  - ATRIOVENTRICULAR BLOCK COMPLETE [None]
  - DEVICE MALFUNCTION [None]
  - UMBILICAL CORD ABNORMALITY [None]
  - PULMONARY ARTERY STENOSIS [None]
  - AUTISM [None]
  - VENTRICULAR SEPTAL DEFECT [None]
  - RIGHT VENTRICULAR HYPERTROPHY [None]
  - COARCTATION OF THE AORTA [None]
  - PREMATURE BABY [None]
